FAERS Safety Report 8905278 (Version 1)
Quarter: 2012Q4

REPORT INFORMATION
  Report Type: 
  Country: JP (occurrence: JP)
  Receive Date: 20121113
  Receipt Date: 20121113
  Transmission Date: 20130627
  Serious: Yes (Hospitalization, Other)
  Sender: FDA-Public Use
  Company Number: JP-009507513-2012SP008002

PATIENT
  Age: 60 Year
  Sex: Male
  Weight: 55 kg

DRUGS (11)
  1. PEGINTRON [Suspect]
     Indication: HEPATITIS C
     Dosage: 1.3 Microgram per kilogram, qw
     Route: 058
     Dates: start: 20120125, end: 20120125
  2. PEGINTRON [Suspect]
     Dosage: 1.0 Microgram per kilogram, qw
     Route: 058
     Dates: start: 20120712, end: 20120906
  3. REBETOL [Suspect]
     Indication: HEPATITIS C
     Dosage: 400 mg, qd
     Route: 048
     Dates: start: 20120125, end: 20120129
  4. REBETOL [Suspect]
     Dosage: 400 mg, qd
     Route: 048
     Dates: start: 20120712, end: 20120719
  5. REBETOL [Suspect]
     Dosage: 200 mg, qd
     Route: 048
     Dates: start: 20120720, end: 20120918
  6. TELAVIC [Suspect]
     Indication: HEPATITIS C
     Dosage: 2250 mg, qd
     Route: 048
     Dates: start: 20120126, end: 20120129
  7. TELAVIC [Suspect]
     Dosage: 1500 mg, qd
     Route: 048
     Dates: start: 20120130, end: 20120201
  8. TELAVIC [Suspect]
     Dosage: 1250 mg, qd
     Route: 048
     Dates: start: 20120712, end: 20120725
  9. TELAVIC [Suspect]
     Dosage: 1000 mg, qd
     Route: 048
     Dates: start: 20120726, end: 20120913
  10. TAKEPRON [Concomitant]
     Indication: GASTROOESOPHAGEAL REFLUX DISEASE
     Dosage: 30 mg, qd
     Route: 048
     Dates: start: 20120125, end: 20120202
  11. TAKEPRON [Concomitant]
     Dosage: 30 mg, qd
     Route: 048

REACTIONS (2)
  - Altered state of consciousness [Recovering/Resolving]
  - Renal impairment [Recovered/Resolved]
